FAERS Safety Report 17680574 (Version 2)
Quarter: 2020Q2

REPORT INFORMATION
  Report Type: Spontaneous
  Country: US (occurrence: US)
  Receive Date: 20200417
  Receipt Date: 20200618
  Transmission Date: 20200714
  Serious: Yes (Hospitalization, Other)
  Sender: FDA-Public Use
  Company Number: US-GLAXOSMITHKLINE-US2020065583

PATIENT
  Sex: Female
  Weight: 61.22 kg

DRUGS (1)
  1. NUCALA [Suspect]
     Active Substance: MEPOLIZUMAB
     Indication: PRODUCT USED FOR UNKNOWN INDICATION
     Dosage: UNK
     Route: 065
     Dates: start: 201903

REACTIONS (5)
  - Influenza [Recovered/Resolved]
  - Bronchitis [Recovered/Resolved]
  - Product dose omission [Unknown]
  - Arthritis infective [Recovered/Resolved with Sequelae]
  - Arthritis [Recovered/Resolved]
